FAERS Safety Report 8840594 (Version 1)
Quarter: 2012Q4

REPORT INFORMATION
  Report Type: 
  Country: IE (occurrence: IE)
  Receive Date: 20121015
  Receipt Date: 20121015
  Transmission Date: 20130627
  Serious: Yes (Death, Other)
  Sender: FDA-Public Use
  Company Number: IE-ROCHE-1145481

PATIENT
  Sex: Female

DRUGS (2)
  1. LUCENTIS [Suspect]
     Indication: AGE-RELATED MACULAR DEGENERATION
     Dosage: dose: 10 mg/ml
     Route: 050
     Dates: start: 20110318
  2. LUCENTIS [Suspect]
     Route: 050
     Dates: start: 20120808

REACTIONS (2)
  - Haemorrhagic stroke [Fatal]
  - Eye pain [Unknown]
